FAERS Safety Report 6367791-4 (Version None)
Quarter: 2009Q3

REPORT INFORMATION
  Report Type: 
  Country: None (occurrence: None)
  Receive Date: 20090921
  Receipt Date: 20090910
  Transmission Date: 20100115
  Serious: Yes (Hospitalization)
  Sender: FDA-Public Use
  Company Number: US-ELI_LILLY_AND_COMPANY-US200908002860

PATIENT
  Sex: Male

DRUGS (7)
  1. FORTEO [Suspect]
     Indication: OSTEOPOROSIS
     Dosage: UNK, UNK
     Dates: start: 20090501, end: 20090801
  2. FORTEO [Suspect]
     Dosage: UNK, UNK
     Dates: start: 20090801, end: 20090101
  3. ATENOLOL [Concomitant]
  4. FLOMAX [Concomitant]
  5. LISINOPRIL [Concomitant]
  6. CALCIUM [Concomitant]
  7. ALENDRONATE SODIUM [Concomitant]

REACTIONS (6)
  - ASTHENIA [None]
  - DIZZINESS [None]
  - FATIGUE [None]
  - HEART RATE INCREASED [None]
  - SENSATION OF HEAVINESS [None]
  - VISUAL IMPAIRMENT [None]
